FAERS Safety Report 10535008 (Version 1)
Quarter: 2014Q4

REPORT INFORMATION
  Report Type: Spontaneous
  Country: NO (occurrence: NO)
  Receive Date: 20141022
  Receipt Date: 20141022
  Transmission Date: 20150529
  Serious: Yes (Hospitalization, Other)
  Sender: FDA-Public Use
  Company Number: NO-PFIZER INC-2014288445

PATIENT
  Age: 21 Year
  Sex: Female
  Weight: 53 kg

DRUGS (4)
  1. ZOLOFT [Interacting]
     Active Substance: SERTRALINE HYDROCHLORIDE
     Indication: ANXIETY
  2. SYNFASE [Interacting]
     Active Substance: ETHINYL ESTRADIOL\NORETHINDRONE
     Indication: CONTRACEPTION
     Dosage: UNK
     Dates: start: 2010
  3. OMEGA 3 [Interacting]
     Active Substance: OMEGA-3 FATTY ACIDS
     Indication: NUTRITIONAL SUPPLEMENTATION
     Dosage: UNK
  4. ZOLOFT [Suspect]
     Active Substance: SERTRALINE HYDROCHLORIDE
     Indication: DEPRESSION
     Dosage: 75 MG, 1X/DAY
     Dates: start: 20130411, end: 20140218

REACTIONS (10)
  - Serotonin syndrome [Recovered/Resolved]
  - Dizziness [Unknown]
  - Chills [Unknown]
  - Gastritis [Recovered/Resolved]
  - Ileus [Unknown]
  - Head discomfort [Unknown]
  - Oesophagitis [Recovered/Resolved]
  - Pancreatitis [Recovered/Resolved]
  - Hot flush [Unknown]
  - Drug interaction [Unknown]

NARRATIVE: CASE EVENT DATE: 2014
